FAERS Safety Report 4987248-2 (Version None)
Quarter: 2006Q2

REPORT INFORMATION
  Report Type: 
  Country: None (occurrence: None)
  Receive Date: 20060501
  Receipt Date: 20050926
  Transmission Date: 20061013
  Serious: Yes (Hospitalization)
  Sender: FDA-Public Use
  Company Number: US-MERCK-0509USA03797

PATIENT
  Age: 74 Year
  Sex: Female
  Weight: 67 kg

DRUGS (5)
  1. VIOXX [Suspect]
     Indication: OSTEOARTHRITIS
     Route: 048
     Dates: start: 19990101, end: 20000901
  2. PROZAC [Concomitant]
     Route: 065
  3. AVAPRO [Concomitant]
     Route: 065
  4. LASIX [Concomitant]
     Route: 065
  5. ANTIVERT [Concomitant]
     Route: 065

REACTIONS (14)
  - ACUTE PULMONARY OEDEMA [None]
  - ARTHRALGIA [None]
  - BUNDLE BRANCH BLOCK LEFT [None]
  - CARDIAC FAILURE CONGESTIVE [None]
  - CARDIOMYOPATHY [None]
  - DEPRESSION [None]
  - DIZZINESS [None]
  - EPISTAXIS [None]
  - HAEMORRHAGE [None]
  - HEADACHE [None]
  - HYPERTENSION [None]
  - HYPERTENSIVE HEART DISEASE [None]
  - MUSCULOSKELETAL DISCOMFORT [None]
  - VENTRICULAR HYPERTROPHY [None]
